FAERS Safety Report 6056312 (Version 3)
Quarter: 2019Q1

REPORT INFORMATION
  Report Type: Spontaneous
  Country: FR (occurrence: FR)
  Receive Date: 20060601
  Receipt Date: 20190201
  Transmission Date: 20190418
  Serious: Yes (Hospitalization, Other)
  Sender: FDA-Public Use
  Company Number: FR-GILEAD-2006-0009632

PATIENT
  Age: 50 Year
  Sex: Male
  Weight: 54 kg

DRUGS (4)
  1. EMTRIVA [Suspect]
     Active Substance: EMTRICITABINE
     Indication: HIV INFECTION
     Dosage: 1 DF, QD
     Route: 048
     Dates: start: 20051117
  2. SUSTIVA [Suspect]
     Active Substance: EFAVIRENZ
     Indication: HIV INFECTION
     Dosage: 1 DF, QD
     Route: 048
     Dates: start: 20051117
  3. SUSTIVA [Suspect]
     Active Substance: EFAVIRENZ
     Indication: HIV INFECTION
  4. VIREAD [Suspect]
     Active Substance: TENOFOVIR DISOPROXIL FUMARATE
     Indication: HIV INFECTION
     Dosage: 1 DF, QD
     Route: 048
     Dates: start: 20051117

REACTIONS (2)
  - Osteonecrosis [Not Recovered/Not Resolved]
  - Chondropathy [Unknown]

NARRATIVE: CASE EVENT DATE: 2006
